FAERS Safety Report 9949960 (Version 1)
Quarter: 2014Q1

REPORT INFORMATION
  Report Type: Report from Study
  Country: US (occurrence: US)
  Receive Date: 20140304
  Receipt Date: 20140304
  Transmission Date: 20141002
  Serious: No
  Sender: FDA-Public Use
  Company Number: US-ABBVIE-13P-163-1069536-00

PATIENT
  Age: 18 Year
  Sex: Male

DRUGS (9)
  1. HUMIRA [Suspect]
     Indication: COLITIS ULCERATIVE
  2. HUMIRA [Suspect]
  3. APRISO [Concomitant]
     Indication: PRODUCT USED FOR UNKNOWN INDICATION
  4. FAMOTIDINE [Concomitant]
     Indication: PRODUCT USED FOR UNKNOWN INDICATION
  5. METRONIDAZOLE [Concomitant]
     Indication: PRODUCT USED FOR UNKNOWN INDICATION
  6. CALCIUM [Concomitant]
     Indication: PRODUCT USED FOR UNKNOWN INDICATION
     Dosage: DAILY
  7. PREDNISONE [Concomitant]
     Indication: COLITIS ULCERATIVE
     Dosage: 20 MG DAILY
  8. PREDNISONE [Concomitant]
     Dosage: DECREASED TO 10 MG DAILY
  9. PREDNISONE [Concomitant]
     Dosage: INCREASED TO 15 MG DAILY
     Dates: start: 20130326

REACTIONS (2)
  - Diarrhoea [Not Recovered/Not Resolved]
  - Injection site pain [Not Recovered/Not Resolved]
